FAERS Safety Report 16349286 (Version 1)
Quarter: 2019Q2

REPORT INFORMATION
  Report Type: Spontaneous
  Country: NL (occurrence: NL)
  Receive Date: 20190523
  Receipt Date: 20190523
  Transmission Date: 20190711
  Serious: Yes (Life-Threatening, Hospitalization, Other)
  Sender: FDA-Public Use
  Company Number: NL-MYLANLABS-2019M1048688

PATIENT
  Age: 26 Year
  Sex: Male

DRUGS (3)
  1. EVEROLIMUS. [Suspect]
     Active Substance: EVEROLIMUS
     Indication: IMMUNOSUPPRESSANT DRUG THERAPY
     Dosage: 3.25 MILLIGRAM
     Route: 065
  2. TACROLIMUS. [Concomitant]
     Active Substance: TACROLIMUS
     Indication: IMMUNOSUPPRESSANT DRUG THERAPY
     Dosage: 6 MILLIGRAM
     Route: 065
  3. PREDNISONE. [Concomitant]
     Active Substance: PREDNISONE
     Indication: IMMUNOSUPPRESSANT DRUG THERAPY
     Dosage: 10 MILLIGRAM, QD
     Route: 065

REACTIONS (10)
  - Pneumocystis jirovecii pneumonia [Recovering/Resolving]
  - Nephrocalcinosis [Recovering/Resolving]
  - Renal failure [Recovering/Resolving]
  - Pneumothorax [Recovering/Resolving]
  - Interstitial lung disease [Recovering/Resolving]
  - Acute respiratory distress syndrome [Recovering/Resolving]
  - Respiratory failure [Recovering/Resolving]
  - Lung disorder [Recovering/Resolving]
  - Toxicity to various agents [Recovering/Resolving]
  - Vascular hyalinosis [Recovering/Resolving]
